FAERS Safety Report 7398579-3 (Version None)
Quarter: 2011Q2

REPORT INFORMATION
  Report Type: 
  Country: None (occurrence: None)
  Receive Date: 20110407
  Receipt Date: 20110329
  Transmission Date: 20111010
  Serious: No
  Sender: FDA-Public Use
  Company Number: US-BIOGENIDEC-2011BI011919

PATIENT
  Age: 51 Year
  Sex: Female

DRUGS (1)
  1. TYSABRI [Suspect]
     Indication: MULTIPLE SCLEROSIS
     Route: 042
     Dates: start: 20080221, end: 20101230

REACTIONS (16)
  - HYPOAESTHESIA [None]
  - SYSTEMIC LUPUS ERYTHEMATOSUS [None]
  - ASTHENIA [None]
  - SOMNOLENCE [None]
  - IRRITABILITY [None]
  - INAPPROPRIATE AFFECT [None]
  - BONE PAIN [None]
  - HEADACHE [None]
  - NAUSEA [None]
  - FIBROMYALGIA [None]
  - MUSCULAR WEAKNESS [None]
  - HYPERSOMNIA [None]
  - PARAESTHESIA [None]
  - COGNITIVE DISORDER [None]
  - GAIT DISTURBANCE [None]
  - SPEECH DISORDER [None]
